FAERS Safety Report 13819072 (Version 1)
Quarter: 2017Q3

REPORT INFORMATION
  Report Type: Report from Study
  Country: US (occurrence: US)
  Receive Date: 20170731
  Receipt Date: 20170731
  Transmission Date: 20171127
  Serious: No
  Sender: FDA-Public Use
  Company Number: US-EXELIXIS-CABO-17008537

PATIENT
  Sex: Male
  Weight: 87.76 kg

DRUGS (1)
  1. CABOMETYX [Suspect]
     Active Substance: CABOZANTINIB S-MALATE
     Indication: RENAL CANCER
     Dosage: 40 MG, QD, 2 DAYS ON, 1 DAY OFF
     Route: 048
     Dates: end: 2017

REACTIONS (17)
  - Asthenia [Unknown]
  - Depressed mood [Unknown]
  - Memory impairment [Unknown]
  - Exfoliative rash [Unknown]
  - Musculoskeletal discomfort [Unknown]
  - Blister [Unknown]
  - Malignant neoplasm progression [Unknown]
  - Dysphonia [Unknown]
  - Decreased appetite [Unknown]
  - Cough [Unknown]
  - Dyspnoea exertional [Unknown]
  - Dizziness [Unknown]
  - Nausea [Unknown]
  - Sluggishness [Unknown]
  - Pain in extremity [Unknown]
  - Nail infection [Unknown]
  - Disturbance in attention [Unknown]
